FAERS Safety Report 17244822 (Version 2)
Quarter: 2021Q4

REPORT INFORMATION
  Report Type: Report from Study
  Country: US (occurrence: US)
  Receive Date: 20200108
  Receipt Date: 20211018
  Transmission Date: 20220303
  Serious: Yes (Life-Threatening, Hospitalization, Other)
  Sender: FDA-Public Use
  Company Number: US-BRISTOL-MYERS SQUIBB COMPANY-BMS-2020-000453

PATIENT
  Age: 63 Year
  Sex: Male
  Weight: 108 kg

DRUGS (8)
  1. NIVOLUMAB [Suspect]
     Active Substance: NIVOLUMAB
     Indication: Malignant melanoma
     Dosage: 292 MILLIGRAM
     Route: 042
     Dates: start: 20191126, end: 20191126
  2. NIVOLUMAB [Suspect]
     Active Substance: NIVOLUMAB
     Dosage: 292 MILLIGRAM
     Route: 042
     Dates: start: 20191210, end: 20191210
  3. NIVOLUMAB [Suspect]
     Active Substance: NIVOLUMAB
     Dosage: 300 MILLIGRAM
     Route: 042
     Dates: start: 20191223
  4. IPILIMUMAB [Suspect]
     Active Substance: IPILIMUMAB
     Indication: Malignant melanoma
     Dosage: 97 MILLIGRAM
     Route: 042
     Dates: start: 20191126
  5. TILSOTOLIMOD [Suspect]
     Active Substance: TILSOTOLIMOD
     Indication: Malignant melanoma
     Dosage: 8 MILLIGRAM
     Route: 036
     Dates: start: 20191120
  6. VERAPAMIL [Concomitant]
     Active Substance: VERAPAMIL HYDROCHLORIDE
     Indication: Product used for unknown indication
     Route: 065
  7. LIPITOR [Concomitant]
     Active Substance: ATORVASTATIN CALCIUM
     Indication: Product used for unknown indication
     Route: 065
  8. HYDROCODONE [Concomitant]
     Active Substance: HYDROCODONE
     Indication: Product used for unknown indication
     Route: 065

REACTIONS (1)
  - Sepsis [Recovered/Resolved]

NARRATIVE: CASE EVENT DATE: 20191223
